FAERS Safety Report 25232607 (Version 1)
Quarter: 2025Q2

REPORT INFORMATION
  Report Type: Spontaneous
  Country: US (occurrence: US)
  Receive Date: 20250424
  Receipt Date: 20250424
  Transmission Date: 20250716
  Serious: Yes (Hospitalization, Other)
  Sender: AMGEN
  Company Number: US-AMGEN-USASP2025077148

PATIENT

DRUGS (1)
  1. GLYCEROL PHENYLBUTYRATE [Suspect]
     Active Substance: GLYCEROL PHENYLBUTYRATE
     Indication: Ornithine transcarbamoylase deficiency
     Route: 065

REACTIONS (2)
  - Hyperammonaemic crisis [Unknown]
  - Hyperammonaemia [Unknown]
